FAERS Safety Report 9224181 (Version 1)
Quarter: 2013Q2

REPORT INFORMATION
  Report Type: Spontaneous
  Country: US (occurrence: US)
  Receive Date: 20130411
  Receipt Date: 20130411
  Transmission Date: 20140414
  Serious: No
  Sender: FDA-Public Use
  Company Number: US-PFIZER INC-2013109905

PATIENT
  Sex: Male

DRUGS (2)
  1. GENOTROPIN [Suspect]
     Dosage: UNK
     Dates: start: 20130405, end: 20130405
  2. INSULIN [Suspect]
     Dosage: UNK

REACTIONS (3)
  - Accidental exposure to product [Unknown]
  - Burning sensation [Unknown]
  - Product quality issue [Unknown]
